FAERS Safety Report 4850466-8 (Version None)
Quarter: 2005Q4

REPORT INFORMATION
  Report Type: 
  Country: None (occurrence: None)
  Receive Date: 20051123
  Receipt Date: 20051021
  Transmission Date: 20060501
  Serious: No
  Sender: FDA-Public Use
  Company Number: 218869

PATIENT
  Sex: Female

DRUGS (1)
  1. RAPTIVA [Suspect]
     Route: 065
     Dates: start: 20050401

REACTIONS (1)
  - PSORIASIS [None]
